FAERS Safety Report 10027815 (Version 3)
Quarter: 2014Q2

REPORT INFORMATION
  Report Type: Spontaneous
  Country: US (occurrence: US)
  Receive Date: 20140321
  Receipt Date: 20140417
  Transmission Date: 20141212
  Serious: Yes (Hospitalization)
  Sender: FDA-Public Use
  Company Number: US-PURDUE-USA-2014-0111710

PATIENT
  Age: 66 Year
  Sex: Male

DRUGS (5)
  1. SENOKOT [Suspect]
     Indication: CONSTIPATION
     Dosage: 2 TABLET, PM
     Route: 048
     Dates: start: 20140226
  2. SENOKOT [Suspect]
     Dosage: 1 TABLET, UNK
     Route: 048
     Dates: start: 20140225
  3. SENOKOT [Suspect]
     Dosage: 1-2 TABLETS, PRN
     Route: 048
     Dates: start: 20140224, end: 20140226
  4. SENOKOT [Suspect]
     Dosage: 4 TABLET, TID
  5. CAPTOPRIL [Concomitant]
     Indication: HYPERTENSION
     Dosage: 60 MG, UNK

REACTIONS (3)
  - Blood pressure abnormal [Unknown]
  - Diarrhoea [Recovered/Resolved]
  - Constipation [Recovered/Resolved]
